FAERS Safety Report 8579068-7 (Version None)
Quarter: 2012Q3

REPORT INFORMATION
  Report Type: 
  Country: None (occurrence: None)
  Receive Date: 20120808
  Receipt Date: 20120731
  Transmission Date: 20120928
  Serious: No
  Sender: FDA-Public Use
  Company Number: US-ASTRAZENECA-2012SE54235

PATIENT
  Age: 66 Year
  Sex: Female
  Weight: 70.3 kg

DRUGS (7)
  1. LEVOTHYROXINE SODIUM [Concomitant]
     Indication: THYROID DISORDER
  2. TEMAZEPAM [Concomitant]
     Indication: SLEEP DISORDER
  3. NEXIUM [Suspect]
     Indication: GASTROOESOPHAGEAL REFLUX DISEASE
     Route: 048
     Dates: start: 20040101
  4. BENADRYL [Concomitant]
     Indication: HYPERSENSITIVITY
  5. IBUPROFEN [Concomitant]
     Indication: PAIN
  6. BENADRYL [Concomitant]
     Indication: SLEEP DISORDER
  7. TYLENOL [Concomitant]
     Indication: PAIN

REACTIONS (4)
  - COUGH [None]
  - DYSPNOEA [None]
  - OSTEOPENIA [None]
  - DIZZINESS [None]
